FAERS Safety Report 4273448-6 (Version None)
Quarter: 2004Q1

REPORT INFORMATION
  Report Type: 
  Country: None (occurrence: None)
  Receive Date: 20040115
  Receipt Date: 20040115
  Transmission Date: 20041129
  Serious: Yes (Hospitalization)
  Sender: FDA-Public Use
  Company Number: None

PATIENT
  Age: 26 Year
  Sex: Female
  Weight: 66.1 kg

DRUGS (8)
  1. INFLIXIMAB  330MG INFUSION [Suspect]
     Dosage: 330MG  INTRAVENOUS
     Route: 042
     Dates: start: 20040106, end: 20040106
  2. ORTHO TRI-CYCLEN [Concomitant]
  3. PENTASA [Concomitant]
  4. IMURAN [Concomitant]
  5. PREVACID [Concomitant]
  6. PREDNISONE [Concomitant]
  7. CACO3 WITH VIT D [Concomitant]
  8. REMICADE [Concomitant]

REACTIONS (5)
  - ABASIA [None]
  - THROMBOTIC STROKE [None]
  - VERTIGO [None]
  - VISION BLURRED [None]
  - VOMITING [None]
